FAERS Safety Report 18747214 (Version 5)
Quarter: 2022Q1

REPORT INFORMATION
  Report Type: Spontaneous
  Country: US (occurrence: US)
  Receive Date: 20210115
  Receipt Date: 20220221
  Transmission Date: 20220423
  Serious: Yes (Death)
  Sender: FDA-Public Use
  Company Number: US-CELGENE-USA-20210103106

PATIENT
  Age: 68 Year
  Sex: Male
  Weight: 71.278 kg

DRUGS (18)
  1. AZACITIDINE [Suspect]
     Active Substance: AZACITIDINE
     Indication: Myelodysplastic syndrome
     Dosage: FIRST 9 CALENDAR DAYS PER 28-DAY CYCLE
     Route: 058
     Dates: start: 20201012, end: 20201117
  2. VENETOCLAX [Suspect]
     Active Substance: VENETOCLAX
     Indication: Myelodysplastic syndrome
     Route: 048
     Dates: start: 20201012, end: 20201122
  3. VENETOCLAX [Suspect]
     Active Substance: VENETOCLAX
     Route: 048
     Dates: start: 20201109, end: 20201122
  4. SYNTHROID [Concomitant]
     Active Substance: LEVOTHYROXINE SODIUM
     Indication: Hypothyroidism
     Dosage: 125 MICROGRAM
     Route: 048
     Dates: start: 20141007
  5. ALEVE [Concomitant]
     Active Substance: NAPROXEN SODIUM
     Indication: Arthralgia
     Dosage: 220 MILLIGRAM
     Route: 048
     Dates: start: 2017
  6. VITAMIN B12 [Concomitant]
     Active Substance: CYANOCOBALAMIN
     Indication: Vitamin B12 deficiency
     Dosage: 1000 MICROGRAM
     Route: 048
     Dates: start: 20190813
  7. FLUTICASONE FUROATE [Concomitant]
     Active Substance: FLUTICASONE FUROATE
     Indication: Sleep apnoea syndrome
     Dosage: 27.5 MICROGRAM
     Route: 045
     Dates: start: 2016
  8. LORATADINE [Concomitant]
     Active Substance: LORATADINE
     Indication: Seasonal allergy
     Dosage: 10 MILLIGRAM
     Route: 048
     Dates: start: 2018
  9. ZOFRAN [Concomitant]
     Active Substance: ONDANSETRON HYDROCHLORIDE
     Indication: Prophylaxis of nausea and vomiting
     Route: 048
     Dates: start: 20201006
  10. ZOFRAN [Concomitant]
     Active Substance: ONDANSETRON HYDROCHLORIDE
     Indication: Prophylaxis of nausea and vomiting
  11. COMPAZINE [Concomitant]
     Active Substance: PROCHLORPERAZINE MALEATE
     Indication: Nausea
     Route: 048
     Dates: start: 20201006
  12. COMPAZINE [Concomitant]
     Active Substance: PROCHLORPERAZINE MALEATE
     Indication: Vomiting
  13. ZOVIRAX [Concomitant]
     Active Substance: ACYCLOVIR
     Indication: Antiviral prophylaxis
     Dosage: 800 MILLIGRAM
     Route: 048
     Dates: start: 20201006
  14. BACTRIM DS [Concomitant]
     Active Substance: SULFAMETHOXAZOLE\TRIMETHOPRIM
     Indication: Antibiotic prophylaxis
     Dosage: 800-160 MG
     Route: 048
     Dates: start: 20201006
  15. PHOSPHA 250 NEUTRAL [Concomitant]
     Active Substance: POTASSIUM PHOSPHATE, MONOBASIC\SODIUM PHOSPHATE, DIBASIC, ANHYDROUS\SODIUM PHOSPHATE, MONOBASIC, MON
     Indication: Hypophosphataemia
     Dosage: 500 MILLIGRAM
     Route: 048
     Dates: start: 20201012
  16. NEUPOGEN [Concomitant]
     Active Substance: FILGRASTIM
     Indication: Neutropenia
     Route: 058
     Dates: start: 20201201, end: 20201216
  17. GRANIX [Concomitant]
     Active Substance: TBO-FILGRASTIM
     Indication: Neutropenia
     Route: 058
     Dates: start: 20201205, end: 20201206
  18. ARANESP [Concomitant]
     Active Substance: DARBEPOETIN ALFA
     Indication: Anaemia
     Dosage: 500 MICROGRAM
     Route: 058
     Dates: start: 20200616

REACTIONS (1)
  - Myelodysplastic syndrome [Fatal]

NARRATIVE: CASE EVENT DATE: 20201231
